FAERS Safety Report 6981132-0 (Version None)
Quarter: 2010Q3

REPORT INFORMATION
  Report Type: 
  Country: None (occurrence: None)
  Receive Date: 20100914
  Receipt Date: 20100831
  Transmission Date: 20110219
  Serious: No
  Sender: FDA-Public Use
  Company Number: US-PFIZER INC-2010083635

PATIENT
  Sex: Female
  Weight: 87.982 kg

DRUGS (3)
  1. CHANTIX [Suspect]
     Indication: SMOKING CESSATION THERAPY
     Dosage: 1 MG, 2X/DAY
     Route: 048
     Dates: start: 20100604
  2. LISINOPRIL AND HYDROCHLOROTHIAZIDE [Concomitant]
     Indication: HYPERTENSION
     Dosage: 20/25 MG, UNK
     Route: 048
  3. PREVACID [Concomitant]
     Indication: DYSPEPSIA
     Dosage: UNK

REACTIONS (2)
  - FATIGUE [None]
  - MUSCULOSKELETAL STIFFNESS [None]
